FAERS Safety Report 12675414 (Version 1)
Quarter: 2016Q3

REPORT INFORMATION
  Report Type: Report from Study
  Country: US (occurrence: US)
  Receive Date: 20160823
  Receipt Date: 20160823
  Transmission Date: 20161109
  Serious: Yes (Other)
  Sender: FDA-Public Use
  Company Number: US-BAUSCH-BL-2016-020180

PATIENT
  Age: 49 Year
  Sex: Male

DRUGS (12)
  1. METHAZOLAMIDE. [Suspect]
     Active Substance: METHAZOLAMIDE
     Indication: AUTOIMMUNE RETINOPATHY
     Route: 065
  2. DORZOLAMIDE AND TIMOLOL [Suspect]
     Active Substance: DORZOLAMIDE\TIMOLOL
     Indication: GLAUCOMA
  3. LATANOPROST. [Suspect]
     Active Substance: LATANOPROST
     Indication: GLAUCOMA
  4. TRIAMCINOLONE ACETATE [Suspect]
     Active Substance: TRIAMCINOLONE ACETONIDE
     Indication: AUTOIMMUNE RETINOPATHY
     Dosage: FOR 20 YEARS
  5. LATANOPROST. [Suspect]
     Active Substance: LATANOPROST
     Indication: AUTOIMMUNE RETINOPATHY
     Route: 065
  6. DORZOLAMIDE AND TIMOLOL [Suspect]
     Active Substance: DORZOLAMIDE\TIMOLOL
     Indication: AUTOIMMUNE RETINOPATHY
     Route: 065
  7. BRIMONIDINE [Suspect]
     Active Substance: BRIMONIDINE TARTRATE
     Indication: AUTOIMMUNE RETINOPATHY
     Route: 065
  8. BRIMONIDINE [Suspect]
     Active Substance: BRIMONIDINE TARTRATE
     Indication: GLAUCOMA
  9. PILOCARPINE. [Suspect]
     Active Substance: PILOCARPINE
     Indication: AUTOIMMUNE RETINOPATHY
     Route: 065
  10. METHAZOLAMIDE. [Suspect]
     Active Substance: METHAZOLAMIDE
     Indication: GLAUCOMA
  11. TRIAMCINOLONE ACETATE [Suspect]
     Active Substance: TRIAMCINOLONE ACETONIDE
     Indication: GLAUCOMA
  12. PILOCARPINE. [Suspect]
     Active Substance: PILOCARPINE
     Indication: GLAUCOMA

REACTIONS (1)
  - Drug effect incomplete [Unknown]
